FAERS Safety Report 6424802-5 (Version None)
Quarter: 2009Q4

REPORT INFORMATION
  Report Type: 
  Country: None (occurrence: None)
  Receive Date: 20091103
  Receipt Date: 20091022
  Transmission Date: 20100525
  Serious: Yes (Hospitalization)
  Sender: FDA-Public Use
  Company Number: PHHY2009MX46212

PATIENT
  Sex: Female

DRUGS (2)
  1. DIOVAN HCT [Suspect]
     Indication: HYPERTENSION
     Dosage: 2 TABLETS (160/12.5 MG) PER DAY
  2. ASPIRIN [Concomitant]
     Dosage: UNK

REACTIONS (5)
  - CYST [None]
  - CYST REMOVAL [None]
  - DIZZINESS [None]
  - EYE HAEMORRHAGE [None]
  - FATIGUE [None]
